FAERS Safety Report 9924697 (Version 1)
Quarter: 2014Q1

REPORT INFORMATION
  Report Type: Spontaneous
  Country: US (occurrence: None)
  Receive Date: 20140224
  Receipt Date: 20140224
  Transmission Date: 20141002
  Serious: Yes (Other)
  Sender: FDA-Public Use
  Company Number: None

PATIENT
  Age: 73 Year
  Sex: Female
  Weight: 81.19 kg

DRUGS (4)
  1. ORENCIA 125MG BRISTOL MYERS SQUIBB [Suspect]
     Indication: RHEUMATOID ARTHRITIS
     Route: 058
     Dates: start: 20120425, end: 20140204
  2. PLAQUENIL [Concomitant]
  3. PREDNISONE [Concomitant]
  4. LOSARTAN [Concomitant]

REACTIONS (1)
  - Breast cancer [None]
